FAERS Safety Report 9510599 (Version 1)
Quarter: 2013Q3

REPORT INFORMATION
  Report Type: Spontaneous
  Country: FR (occurrence: FR)
  Receive Date: 20130909
  Receipt Date: 20130909
  Transmission Date: 20140515
  Serious: Yes (Other)
  Sender: FDA-Public Use
  Company Number: FR-PFIZER INC-2013257784

PATIENT
  Age: 78 Year
  Sex: Female

DRUGS (1)
  1. LYRICA [Suspect]
     Dosage: 75 MG DAILY

REACTIONS (1)
  - Epilepsy [Unknown]
